FAERS Safety Report 11889806 (Version 3)
Quarter: 2016Q1

REPORT INFORMATION
  Report Type: Spontaneous
  Country: US (occurrence: US)
  Receive Date: 20151221
  Receipt Date: 20160203
  Transmission Date: 20160526
  Serious: Yes (Hospitalization, Other)
  Sender: FDA-Public Use
  Company Number: US-GLAXOSMITHKLINE-US2015GSK179281

PATIENT
  Age: 67 Year
  Sex: Male

DRUGS (1)
  1. LAMICTAL [Suspect]
     Active Substance: LAMOTRIGINE
     Indication: DIAGNOSTIC PROCEDURE
     Dosage: 200 MG, UNK
     Dates: start: 2013

REACTIONS (7)
  - Off label use [Unknown]
  - Knee arthroplasty [Unknown]
  - Necrotising soft tissue infection [Unknown]
  - Knee operation [Unknown]
  - Necrotising fasciitis [Unknown]
  - Bacterial infection [Unknown]
  - Clostridial infection [Unknown]

NARRATIVE: CASE EVENT DATE: 20151013
